FAERS Safety Report 22294171 (Version 1)
Quarter: 2023Q2

REPORT INFORMATION
  Report Type: Spontaneous
  Country: CN (occurrence: CN)
  Receive Date: 20230508
  Receipt Date: 20230508
  Transmission Date: 20230721
  Serious: Yes (Hospitalization)
  Sender: FDA-Public Use
  Company Number: CN-JUBILANT CADISTA PHARMACEUTICALS-2023CN000249

PATIENT
  Age: 17 Year
  Sex: Male

DRUGS (20)
  1. METHYLPREDNISOLONE [Suspect]
     Active Substance: METHYLPREDNISOLONE
     Indication: Pityriasis lichenoides et varioliformis acuta
     Dosage: 60 MG DAILY
     Route: 042
  2. METHYLPREDNISOLONE [Suspect]
     Active Substance: METHYLPREDNISOLONE
     Indication: C-reactive protein increased
     Dosage: 300 MG DAILY ON FIRST DAY
     Route: 042
  3. METHYLPREDNISOLONE [Suspect]
     Active Substance: METHYLPREDNISOLONE
     Indication: Procalcitonin increased
     Dosage: 200 MG DAILY ON SECOND DAY
     Route: 042
  4. METHYLPREDNISOLONE [Suspect]
     Active Substance: METHYLPREDNISOLONE
     Dosage: 100 MG ON THE THIRD DAY
     Route: 042
  5. METHOTREXATE [Suspect]
     Active Substance: METHOTREXATE
     Indication: Pityriasis lichenoides et varioliformis acuta
     Dosage: 15 MG WEEKLY
  6. METHOTREXATE [Suspect]
     Active Substance: METHOTREXATE
     Indication: C-reactive protein increased
  7. METHOTREXATE [Suspect]
     Active Substance: METHOTREXATE
     Indication: Procalcitonin increased
  8. GLYCYRRHIZA GLABRA\HERBALS [Concomitant]
     Active Substance: GLYCYRRHIZA GLABRA\HERBALS
     Indication: Erythema multiforme
     Dosage: UNK   UNK
  9. HUMAN IMMUNOGLOBULIN G [Concomitant]
     Active Substance: HUMAN IMMUNOGLOBULIN G
     Indication: Pityriasis lichenoides et varioliformis acuta
     Dosage: UNK UNK
     Route: 042
  10. HUMAN IMMUNOGLOBULIN G [Concomitant]
     Active Substance: HUMAN IMMUNOGLOBULIN G
     Indication: Procalcitonin increased
  11. HUMAN IMMUNOGLOBULIN G [Concomitant]
     Active Substance: HUMAN IMMUNOGLOBULIN G
     Indication: C-reactive protein increased
  12. PIPERACILLIN SODIUM [Concomitant]
     Active Substance: PIPERACILLIN SODIUM
     Indication: Pityriasis lichenoides et varioliformis acuta
     Dosage: UNK  UNK
  13. TAZOBACTAM SODIUM [Concomitant]
     Active Substance: TAZOBACTAM SODIUM
     Indication: Pityriasis lichenoides et varioliformis acuta
     Dosage: UNK  UNK
  14. VANCOMYCIN [Concomitant]
     Active Substance: VANCOMYCIN
     Indication: Wound infection staphylococcal
     Dosage: UNK  UNK
  15. IBUPROFEN [Concomitant]
     Active Substance: IBUPROFEN
     Indication: Pyrexia
     Dosage: UNK  UNK
  16. LEVOFLOXACIN [Concomitant]
     Active Substance: LEVOFLOXACIN
     Indication: Wound infection staphylococcal
     Dosage: UNK  UNK
  17. RIBAVIRIN [Concomitant]
     Active Substance: RIBAVIRIN
     Indication: Viral infection
     Dosage: UNK  UNK
  18. MUPIROCIN [Concomitant]
     Active Substance: MUPIROCIN
     Indication: Wound treatment
     Dosage: UNK  UNK
  19. IMIPENEM AND CILASTATIN [Concomitant]
     Active Substance: CILASTATIN SODIUM\IMIPENEM
     Indication: Antibiotic therapy
     Dosage: UNK  UNK
  20. MINOCYCLINE [Concomitant]
     Active Substance: MINOCYCLINE HYDROCHLORIDE
     Indication: Antibiotic therapy
     Dosage: UNK  UNK

REACTIONS (1)
  - Hepatic function abnormal [Recovered/Resolved]
